FAERS Safety Report 24097362 (Version 1)
Quarter: 2024Q3

REPORT INFORMATION
  Report Type: Spontaneous
  Country: NL (occurrence: NL)
  Receive Date: 20240716
  Receipt Date: 20240716
  Transmission Date: 20241016
  Serious: Yes (Life-Threatening)
  Sender: PFIZER
  Company Number: None

PATIENT
  Age: 64 Year
  Sex: Female
  Weight: 54 kg

DRUGS (1)
  1. FILGRASTIM [Suspect]
     Active Substance: FILGRASTIM
     Indication: Haematopoietic stem cell mobilisation
     Dosage: 1X/ DAY 1 DF OF 30MILJ E
     Dates: start: 20240603, end: 20240610

REACTIONS (2)
  - Splenic rupture [Recovering/Resolving]
  - Hypovolaemic shock [Recovering/Resolving]
